FAERS Safety Report 7755306-5 (Version None)
Quarter: 2011Q3

REPORT INFORMATION
  Report Type: 
  Country: None (occurrence: None)
  Receive Date: 20110914
  Receipt Date: 20110905
  Transmission Date: 20111222
  Serious: Yes (Hospitalization)
  Sender: FDA-Public Use
  Company Number: 2011MA013321

PATIENT

DRUGS (2)
  1. IBUPROFEN [Suspect]
     Indication: OSTEOARTHRITIS
     Dosage: 800 MG;
     Dates: start: 20110201
  2. ASPIRIN [Suspect]
     Indication: CORONARY ARTERY DISEASE
     Dosage: 100 MG; PO
     Route: 048
     Dates: start: 20070101

REACTIONS (3)
  - NAUSEA [None]
  - HYPERTENSIVE CRISIS [None]
  - ABDOMINAL PAIN UPPER [None]
